FAERS Safety Report 24642857 (Version 1)
Quarter: 2024Q4

REPORT INFORMATION
  Report Type: Spontaneous
  Country: GB (occurrence: GB)
  Receive Date: 20241120
  Receipt Date: 20241120
  Transmission Date: 20250115
  Serious: Yes (Other)
  Sender: PFIZER
  Company Number: None

PATIENT
  Age: 35 Year
  Sex: Male
  Weight: 96 kg

DRUGS (5)
  1. METHOTREXATE SODIUM [Suspect]
     Active Substance: METHOTREXATE SODIUM
     Dosage: 7.5 MG, WEEKLY
     Dates: start: 20240214, end: 20240701
  2. LANSOPRAZOLE [Concomitant]
     Active Substance: LANSOPRAZOLE
     Dosage: ONE TO BE TAKEN TWICE A DAY
     Dates: start: 20240820, end: 20241002
  3. FLUOXETINE [Concomitant]
     Active Substance: FLUOXETINE HYDROCHLORIDE
     Dosage: ONE TO BE TAKEN EACH DAY
     Dates: start: 20240905
  4. INFLUENZA VIRUS VACCINE [Concomitant]
     Active Substance: INFLUENZA VIRUS VACCINE
     Dosage: AS DIRECTED
     Dates: start: 20241005
  5. ATORVASTATIN [Concomitant]
     Active Substance: ATORVASTATIN
     Dosage: ONE TO BE TAKEN EACH DAY
     Dates: start: 20241010, end: 20241105

REACTIONS (2)
  - Hepatic enzyme abnormal [Recovering/Resolving]
  - Alanine aminotransferase increased [Unknown]

NARRATIVE: CASE EVENT DATE: 20240322
